FAERS Safety Report 14586532 (Version 1)
Quarter: 2018Q1

REPORT INFORMATION
  Report Type: Report from Study
  Country: US (occurrence: US)
  Receive Date: 20180301
  Receipt Date: 20180301
  Transmission Date: 20180509
  Serious: Yes (Other)
  Sender: FDA-Public Use
  Company Number: US-CIPLA LTD.-2018US08624

PATIENT

DRUGS (2)
  1. CARBOPLATIN. [Suspect]
     Active Substance: CARBOPLATIN
     Indication: BREAST CANCER METASTATIC
     Dosage: UNK, AREA UNDER THE CURVE, 2.5 ON DAYS 1 AND 8 OF 21 DAY CYCLE
     Route: 042
  2. IXABEPILONE [Suspect]
     Active Substance: IXABEPILONE
     Indication: BREAST CANCER METASTATIC
     Dosage: 20 MG/M2, GIVEN OVER 60 MINUTES
     Route: 042

REACTIONS (1)
  - Malignant neoplasm progression [Unknown]
